FAERS Safety Report 9866926 (Version 1)
Quarter: 2014Q1

REPORT INFORMATION
  Report Type: Spontaneous
  Country: US (occurrence: None)
  Receive Date: 20140131
  Receipt Date: 20140131
  Transmission Date: 20141002
  Serious: Yes (Other)
  Sender: FDA-Public Use
  Company Number: UTC-043918

PATIENT
  Age: 48 Year
  Sex: Female

DRUGS (3)
  1. REMODULIN (2.5 MILLIGRAM / MILLILITERS, INJECTION FOR INFUSION) (TREPROSTINIL SODIUM) [Suspect]
     Indication: PULMONARY ARTERIAL HYPERTENSION
     Dosage: 93.6 UG/KG (0.065 UG/KG, 1 IN 1 D,
     Route: 041
     Dates: start: 20121108
  2. ADCIRCA (TADALAFIL) (UNKNOWN) [Concomitant]
  3. COUMADIN (WARFARIN-) [Concomitant]

REACTIONS (1)
  - Drug intolerance [None]
